FAERS Safety Report 4335582-1 (Version None)
Quarter: 2004Q2

REPORT INFORMATION
  Report Type: 
  Country: None (occurrence: None)
  Receive Date: 20040406
  Receipt Date: 20040324
  Transmission Date: 20050107
  Serious: Yes (Hospitalization)
  Sender: FDA-Public Use
  Company Number: 03P-163-0234501-00

PATIENT
  Age: 37 Year
  Sex: Male

DRUGS (4)
  1. NORVIR [Suspect]
     Indication: HIV INFECTION
     Dosage: 400 MG, PER ORAL
     Route: 048
     Dates: start: 20021218, end: 20030714
  2. TIPRANAVIR [Concomitant]
  3. DAPSONE [Concomitant]
  4. IBUPROFEN [Concomitant]

REACTIONS (5)
  - HAEMATOMA [None]
  - OSTEONECROSIS [None]
  - POST PROCEDURAL HAEMORRHAGE [None]
  - POSTOPERATIVE INFECTION [None]
  - STAPHYLOCOCCAL INFECTION [None]
